FAERS Safety Report 12818760 (Version 2)
Quarter: 2016Q4

REPORT INFORMATION
  Report Type: Spontaneous
  Country: BR (occurrence: GB)
  Receive Date: 20161006
  Receipt Date: 20161010
  Transmission Date: 20170207
  Serious: Yes (Other)
  Sender: FDA-Public Use
  Company Number: BR-JNJFOC-20160930566

PATIENT

DRUGS (2)
  1. PARACETAMOL [Suspect]
     Active Substance: ACETAMINOPHEN
     Route: 064
  2. PARACETAMOL [Suspect]
     Active Substance: ACETAMINOPHEN
     Indication: PRODUCT USED FOR UNKNOWN INDICATION
     Dosage: MOTHER^S DOSING
     Route: 064

REACTIONS (3)
  - Autism [Unknown]
  - Foetal exposure during pregnancy [Unknown]
  - Attention deficit/hyperactivity disorder [Unknown]
